FAERS Safety Report 16170467 (Version 2)
Quarter: 2019Q2

REPORT INFORMATION
  Report Type: Spontaneous
  Country: BR (occurrence: BR)
  Receive Date: 20190408
  Receipt Date: 20190516
  Transmission Date: 20190711
  Serious: Yes (Other)
  Sender: FDA-Public Use
  Company Number: BR-PFIZER INC-2019132838

PATIENT
  Sex: Female

DRUGS (5)
  1. BRILINTA [Concomitant]
     Active Substance: TICAGRELOR
     Dosage: UNK
  2. VAST [Concomitant]
     Dosage: UNK
  3. DAFLON [BIOFLAVONOIDS;DIOSMIN;HESPERIDIN] [Concomitant]
     Indication: CARDIOVASCULAR DISORDER
     Dosage: UNK
  4. FRONTAL [Suspect]
     Active Substance: ALPRAZOLAM
     Indication: ANXIETY DISORDER
     Dosage: 2.5 MG, DAILY
  5. ZETIA [Concomitant]
     Active Substance: EZETIMIBE
     Dosage: UNK

REACTIONS (5)
  - Product physical issue [Recovered/Resolved]
  - Myocardial ischaemia [Recovering/Resolving]
  - Coronary artery occlusion [Recovering/Resolving]
  - Myocardial bridging [Unknown]
  - Poor quality product administered [Recovered/Resolved]
